FAERS Safety Report 10708073 (Version 3)
Quarter: 2015Q1

REPORT INFORMATION
  Report Type: Spontaneous
  Country: US (occurrence: US)
  Receive Date: 20150113
  Receipt Date: 20150318
  Transmission Date: 20150721
  Serious: No
  Sender: FDA-Public Use
  Company Number: US-TEVA-533872USA

PATIENT
  Sex: Female

DRUGS (1)
  1. NUVIGIL [Suspect]
     Active Substance: ARMODAFINIL
     Dates: start: 20140918

REACTIONS (3)
  - Extrasystoles [Unknown]
  - Palpitations [Recovered/Resolved]
  - Heart rate irregular [Recovering/Resolving]

NARRATIVE: CASE EVENT DATE: 2014
